FAERS Safety Report 10501938 (Version 2)
Quarter: 2014Q4

REPORT INFORMATION
  Report Type: Spontaneous
  Country: US (occurrence: None)
  Receive Date: 20141003
  Receipt Date: 20141107
  Transmission Date: 20150528
  Serious: Yes (Other)
  Sender: FDA-Public Use
  Company Number: US-H14001-14-00845

PATIENT
  Age: 41 Year
  Sex: Female
  Weight: 84 kg

DRUGS (7)
  1. CETIRIZINE (CETIRIZINE) (UNKNOWN) (CETIRIZINE) [Concomitant]
  2. CARISOPRODOL. [Suspect]
     Active Substance: CARISOPRODOL
     Indication: MUSCLE SPASMS
     Dosage: 1050 MG (350 MG, 3 IN 1 D), UNKNOWN?
  3. DULOXETINE [Suspect]
     Active Substance: DULOXETINE
     Indication: DEPRESSION
     Dosage: 60 MG, UNKNOWN
  4. CYCLOBENZAPRINE [Suspect]
     Active Substance: CYCLOBENZAPRINE
     Indication: MUSCLE SPASMS
     Dosage: 5 MG (AT NIGHTTIME), UNKNOWN
  5. AMITRIPTYLINE [Suspect]
     Active Substance: AMITRIPTYLINE
     Indication: PRODUCT USED FOR UNKNOWN INDICATION
     Dosage: 25 MG (AT NIGHTTIME), UNKNOWN
  6. GABAPENTIN (GABAPENTIN) (GABAPENTIN) [Concomitant]
     Active Substance: GABAPENTIN
  7. TRAMADOL [Suspect]
     Active Substance: TRAMADOL
     Indication: PAIN
     Dosage: 50 MG, UNKNOWN

REACTIONS (4)
  - Serotonin syndrome [None]
  - Akathisia [None]
  - Dry mouth [None]
  - Incorrect drug administration duration [None]
